FAERS Safety Report 4340686-3 (Version None)
Quarter: 2004Q2

REPORT INFORMATION
  Report Type: 
  Country: None (occurrence: None)
  Receive Date: 20040414
  Receipt Date: 20040406
  Transmission Date: 20050107
  Serious: Yes (Death)
  Sender: FDA-Public Use
  Company Number: T04-USA-00862-01

PATIENT
  Age: 75 Year
  Sex: Female
  Weight: 76.4765 kg

DRUGS (21)
  1. MEMANTINE  (OPEN LABEL, PHASE D) (MEMANTINE) [Suspect]
     Indication: DEMENTIA ALZHEIMER'S TYPE
     Dosage: 20 MG QD PO
     Route: 048
     Dates: start: 20031215, end: 20040225
  2. MAMANTINE (OPEN LABEL, PHASE C) (MEMANTINE) [Suspect]
     Indication: DEMENTIA ALZHEIMER'S TYPE
     Dosage: 20 MG QD PO
     Route: 048
     Dates: start: 20041217, end: 20031215
  3. MEMANTINE(OPEN LABEL, PHASE B) (MEMANTINE) [Suspect]
     Indication: DEMENTIA ALZHEIMER'S TYPE
     Dosage: 20 MG QD PO
     Route: 048
     Dates: start: 20020702, end: 20021216
  4. MEMANTINE (OPEN LABEL, PHASE A) (MEMANTINE) [Suspect]
     Indication: DEMENTIA ALZHEIMER'S TYPE
     Dosage: 2 TABLETS BID PO
     Route: 048
     Dates: start: 20020604, end: 20020701
  5. RISPERIDONE [Concomitant]
  6. PSYLLIUM [Concomitant]
  7. MOMETASONE FUROATE [Concomitant]
  8. GARLIC [Concomitant]
  9. FEXOFENADINE HCL [Concomitant]
  10. ALLERGY SHOT [Concomitant]
  11. DOCUSATE SODIUM [Concomitant]
  12. VALDECOXIB [Concomitant]
  13. DEXAMETHASONE [Concomitant]
  14. GINKGO (GINKGO BILBOA) [Concomitant]
  15. LEVOTHYROXINE SODIUM [Concomitant]
  16. DONEPEZIL HCL [Concomitant]
  17. ESTRADIOL [Concomitant]
  18. ASPIRIN [Concomitant]
  19. CALCIUM CITRATE [Concomitant]
  20. MULTI-VITAMINS [Concomitant]
  21. VITAMINS E (VITAMIN E [Concomitant]

REACTIONS (29)
  - ACTIVITIES OF DAILY LIVING IMPAIRED [None]
  - ARTHRITIS [None]
  - BLOOD GLUCOSE INCREASED [None]
  - BLOOD PRESSURE DECREASED [None]
  - BLOOD SODIUM DECREASED [None]
  - CARDIO-RESPIRATORY ARREST [None]
  - COMA [None]
  - CONDITION AGGRAVATED [None]
  - CONFUSIONAL STATE [None]
  - CONSTIPATION [None]
  - CONVULSION [None]
  - DELUSION [None]
  - DEPRESSED LEVEL OF CONSCIOUSNESS [None]
  - DYSPNOEA [None]
  - EYE IRRITATION [None]
  - HALLUCINATION [None]
  - HYPERSOMNIA [None]
  - MEMORY IMPAIRMENT [None]
  - MIOSIS [None]
  - MYOCARDIAL INFARCTION [None]
  - PARANOIA [None]
  - PARKINSONIAN GAIT [None]
  - POLLAKIURIA [None]
  - PULMONARY EMBOLISM [None]
  - PULSE ABSENT [None]
  - RESPIRATORY RATE INCREASED [None]
  - SUPRAVENTRICULAR EXTRASYSTOLES [None]
  - THROMBOSIS [None]
  - VENTRICULAR EXTRASYSTOLES [None]
